FAERS Safety Report 4577003-X (Version None)
Quarter: 2005Q1

REPORT INFORMATION
  Report Type: 
  Country: None (occurrence: None)
  Receive Date: 20050208
  Receipt Date: 20050125
  Transmission Date: 20050727
  Serious: Yes (Hospitalization, Disabling, Other)
  Sender: FDA-Public Use
  Company Number: 2005022442

PATIENT
  Age: 63 Year
  Sex: Female
  Weight: 92.5338 kg

DRUGS (6)
  1. CELEBREX [Suspect]
     Indication: ILL-DEFINED DISORDER
     Dosage: 200 MG (1 IN 1 D)
  2. INSULIN [Concomitant]
  3. METFORMIN HCL [Concomitant]
  4. VALSARTAN (VALSARTAN) [Concomitant]
  5. VITAMINS (VITAMINS) [Concomitant]
  6. THYROID TAB [Concomitant]

REACTIONS (5)
  - CARDIAC MURMUR [None]
  - HYPOAESTHESIA [None]
  - MOBILITY DECREASED [None]
  - NEUROPATHY [None]
  - PAIN IN EXTREMITY [None]
